FAERS Safety Report 8102636-3 (Version None)
Quarter: 2012Q1

REPORT INFORMATION
  Report Type: 
  Country: None (occurrence: None)
  Receive Date: 20120126
  Receipt Date: 20120104
  Transmission Date: 20120608
  Serious: Yes (Disabling)
  Sender: FDA-Public Use
  Company Number: 1022556-2012-00005

PATIENT
  Age: 43 Year
  Sex: Female

DRUGS (1)
  1. ICY HOT POWER GEL 1.75 OZ [Suspect]
     Indication: MYALGIA
     Dosage: TOPICAL
     Route: 061

REACTIONS (2)
  - THERMAL BURN [None]
  - SCAR [None]
